FAERS Safety Report 6390859-3 (Version None)
Quarter: 2009Q4

REPORT INFORMATION
  Report Type: 
  Country: None (occurrence: None)
  Receive Date: 20091006
  Receipt Date: 20091002
  Transmission Date: 20100525
  Serious: Yes (Other)
  Sender: FDA-Public Use
  Company Number: US-RB-020810-09

PATIENT
  Age: 22 Year
  Sex: Male

DRUGS (4)
  1. SUBOXONE [Suspect]
     Dosage: DOSING INFORMATION UNKNOWN.
     Route: 060
     Dates: start: 20090925
  2. ZOLOFT [Concomitant]
     Indication: DEPRESSION
     Dosage: DOSING INFORMATION UNKNOWN.
     Route: 065
     Dates: start: 20090201
  3. ADDERALL 10 [Concomitant]
     Dosage: DOSING INFORMATION UNKNOWN.
     Route: 065
     Dates: start: 20090201
  4. WELLBUTRIN [Concomitant]
     Indication: DEPRESSION
     Dosage: DOSING INFORMATION UNKNOWN.
     Route: 065
     Dates: start: 20090201

REACTIONS (1)
  - CONVULSION [None]
